FAERS Safety Report 15963029 (Version 2)
Quarter: 2019Q1

REPORT INFORMATION
  Report Type: Report from Study
  Country: CO (occurrence: CO)
  Receive Date: 20190214
  Receipt Date: 20190220
  Transmission Date: 20190417
  Serious: Yes (Death, Hospitalization, Other)
  Sender: FDA-Public Use
  Company Number: CO-SA-2019SA042815

PATIENT
  Age: 77 Year
  Sex: Male

DRUGS (2)
  1. CABAZITAXEL [Suspect]
     Active Substance: CABAZITAXEL
     Indication: PROSTATE CANCER
     Dosage: 60 MG, Q3W
     Route: 042
     Dates: start: 20190212, end: 20190212
  2. CABAZITAXEL [Suspect]
     Active Substance: CABAZITAXEL
     Dosage: 60 MG, Q3W
     Route: 042
     Dates: start: 20181207, end: 20181207

REACTIONS (6)
  - Asthenia [Not Recovered/Not Resolved]
  - Disease progression [Unknown]
  - Asphyxia [Not Recovered/Not Resolved]
  - Lethargy [Not Recovered/Not Resolved]
  - Pyrexia [Not Recovered/Not Resolved]
  - Sepsis [Fatal]

NARRATIVE: CASE EVENT DATE: 20190208
